FAERS Safety Report 4549723-4 (Version None)
Quarter: 2005Q1

REPORT INFORMATION
  Report Type: 
  Country: None (occurrence: None)
  Receive Date: 20050111
  Receipt Date: 20050104
  Transmission Date: 20050727
  Serious: Yes (Hospitalization)
  Sender: FDA-Public Use
  Company Number: GB-ABBOTT-05P-167-0285599-00

PATIENT
  Age: 41 Year
  Sex: Female
  Weight: 114.9 kg

DRUGS (6)
  1. SIBUTRAMINE [Suspect]
     Indication: OBESITY
  2. SIBUTRAMINE [Suspect]
     Route: 048
     Dates: start: 20040501, end: 20040625
  3. BENDROFLUMETHIAZIDE [Concomitant]
     Indication: DRUG USE FOR UNKNOWN INDICATION
     Route: 048
     Dates: start: 20030101
  4. RAMIPRIL [Concomitant]
     Indication: DRUG USE FOR UNKNOWN INDICATION
     Route: 048
     Dates: start: 20030101
  5. SENNA [Concomitant]
     Indication: DRUG USE FOR UNKNOWN INDICATION
     Route: 048
  6. PSEUDOEPHEDRINE HYDROCHLORIDE [Concomitant]
     Indication: SINUS DISORDER
     Route: 048

REACTIONS (4)
  - ABDOMINAL PAIN LOWER [None]
  - CONSTIPATION [None]
  - REFUSAL OF TREATMENT BY PATIENT [None]
  - THERAPY NON-RESPONDER [None]
